FAERS Safety Report 5400698-5 (Version None)
Quarter: 2007Q3

REPORT INFORMATION
  Report Type: 
  Country: None (occurrence: None)
  Receive Date: 20070730
  Receipt Date: 20070718
  Transmission Date: 20080115
  Serious: Yes (Other)
  Sender: FDA-Public Use
  Company Number: US-PFIZER INC-2007060069

PATIENT
  Sex: Female
  Weight: 54 kg

DRUGS (2)
  1. DEPO-SUBQ PROVERA 104 [Suspect]
     Indication: CONTRACEPTION
     Route: 058
     Dates: start: 20051201, end: 20051201
  2. DEPO-SUBQ PROVERA 104 [Suspect]
     Route: 058
     Dates: start: 20070508, end: 20070508

REACTIONS (3)
  - ABDOMINAL PAIN [None]
  - ABDOMINAL WALL MASS [None]
  - FAT NECROSIS [None]
